FAERS Safety Report 8584609 (Version 3)
Quarter: 2013Q1

REPORT INFORMATION
  Report Type: Spontaneous
  Country: US (occurrence: US)
  Receive Date: 20120529
  Receipt Date: 20130228
  Transmission Date: 20140127
  Serious: No
  Sender: FDA-Public Use
  Company Number: US-ABBOTT-12P-163-0938390-00

PATIENT
  Sex: Male
  Weight: 136.2 kg

DRUGS (11)
  1. ANDROGEL 1.62% [Suspect]
     Indication: BLOOD TESTOSTERONE DECREASED
     Dosage: 2 PUMPS PER DAY
     Route: 061
     Dates: start: 201204
  2. INDOCIN [Suspect]
     Indication: MUSCULOSKELETAL PAIN
     Dates: start: 201204
  3. INDOCIN [Suspect]
     Indication: NECK PAIN
  4. CYCLOBENZAPRINE [Suspect]
     Indication: MUSCULOSKELETAL PAIN
     Dates: start: 201204
  5. CYCLOBENZAPRINE [Suspect]
     Indication: NECK PAIN
  6. RELAFEN [Suspect]
     Indication: MUSCULOSKELETAL PAIN
     Dates: start: 201204
  7. RELAFEN [Suspect]
     Indication: NECK PAIN
  8. SYMBICORT [Suspect]
     Indication: SLEEP APNOEA SYNDROME
     Dates: start: 201204
  9. UNKNOWN ANTIBIOTIC [Concomitant]
     Indication: COUGH
     Dates: start: 201204, end: 201204
  10. UNKNOWN ANTIBIOTIC [Concomitant]
     Indication: NASAL CONGESTION
  11. ESCITALOPRAM [Concomitant]
     Indication: ANXIETY

REACTIONS (9)
  - Injury [Recovering/Resolving]
  - Neck pain [Not Recovered/Not Resolved]
  - Back pain [Not Recovered/Not Resolved]
  - Blood testosterone decreased [Not Recovered/Not Resolved]
  - Drug ineffective [Not Recovered/Not Resolved]
  - Hyperhidrosis [Not Recovered/Not Resolved]
  - Alopecia [Not Recovered/Not Resolved]
  - Hair texture abnormal [Not Recovered/Not Resolved]
  - Alopecia [Not Recovered/Not Resolved]
